FAERS Safety Report 23137012 (Version 1)
Quarter: 2023Q4

REPORT INFORMATION
  Report Type: Report from Study
  Country: NZ (occurrence: NZ)
  Receive Date: 20231102
  Receipt Date: 20231102
  Transmission Date: 20240110
  Serious: Yes (Hospitalization)
  Sender: FDA-Public Use
  Company Number: NZ-002147023-NVSC2023NZ215735

PATIENT
  Age: 65 Year
  Sex: Male
  Weight: 65.2 kg

DRUGS (8)
  1. VENETOCLAX [Suspect]
     Active Substance: VENETOCLAX
     Indication: Acute myeloid leukaemia
     Dosage: 100 MG
     Route: 065
     Dates: start: 20230725
  2. RYDAPT [Suspect]
     Active Substance: MIDOSTAURIN
     Indication: Acute myeloid leukaemia
     Dosage: 50 MG
     Route: 065
     Dates: start: 20220804
  3. HYDROCORTISONE [Concomitant]
     Active Substance: HYDROCORTISONE
     Indication: Rash
     Dosage: UNK
     Route: 065
     Dates: start: 20230201
  4. METOCLOPRAMIDE [Concomitant]
     Active Substance: METOCLOPRAMIDE
     Indication: Nausea
     Dosage: UNK
     Route: 065
     Dates: start: 20220728
  5. VALACYCLOVIR HYDROCHLORIDE [Concomitant]
     Active Substance: VALACYCLOVIR HYDROCHLORIDE
     Indication: Prophylaxis
     Dosage: UNK
     Route: 065
     Dates: start: 20220727
  6. ZOPICLONE [Concomitant]
     Active Substance: ZOPICLONE
     Indication: Insomnia
     Dosage: UNK
     Route: 065
     Dates: start: 20220811
  7. OMEPRAZOLE [Concomitant]
     Active Substance: OMEPRAZOLE
     Indication: Prophylaxis
     Dosage: UNK
     Route: 065
     Dates: start: 20190321
  8. VANCOMYCIN [Concomitant]
     Active Substance: VANCOMYCIN
     Indication: Clostridium difficile infection
     Dosage: UNK
     Route: 065
     Dates: start: 20231003

REACTIONS (2)
  - Anal abscess [Recovered/Resolved]
  - Enterocolitis [Recovered/Resolved]

NARRATIVE: CASE EVENT DATE: 20231001
